FAERS Safety Report 7270688-9 (Version None)
Quarter: 2011Q1

REPORT INFORMATION
  Report Type: 
  Country: None (occurrence: None)
  Receive Date: 20110202
  Receipt Date: 20110126
  Transmission Date: 20110831
  Serious: Yes (Other)
  Sender: FDA-Public Use
  Company Number: B0688031A

PATIENT
  Sex: Male

DRUGS (2)
  1. CONCURRENT MEDICATIONS [Concomitant]
  2. SERETIDE [Suspect]
     Indication: ASTHMA
     Route: 065

REACTIONS (2)
  - OSTEONECROSIS [None]
  - ARTHRALGIA [None]
